FAERS Safety Report 4827407-2 (Version None)
Quarter: 2005Q4

REPORT INFORMATION
  Report Type: 
  Country: None (occurrence: None)
  Receive Date: 20051114
  Receipt Date: 20050920
  Transmission Date: 20060501
  Serious: Yes (Death, Hospitalization, Disabling, Other)
  Sender: FDA-Public Use
  Company Number: US-MERCK-0509USA03219

PATIENT
  Age: 79 Year
  Sex: Female
  Weight: 61 kg

DRUGS (9)
  1. VIOXX [Suspect]
     Indication: OSTEOARTHRITIS
     Route: 048
     Dates: start: 20000127, end: 20020502
  2. VIOXX [Suspect]
     Route: 048
     Dates: start: 20000127, end: 20020502
  3. VIOXX [Suspect]
     Route: 048
     Dates: start: 20000127, end: 20020502
  4. VIOXX [Suspect]
     Indication: PAIN IN EXTREMITY
     Route: 048
     Dates: start: 20000127, end: 20020502
  5. VIOXX [Suspect]
     Route: 048
     Dates: start: 20000127, end: 20020502
  6. VIOXX [Suspect]
     Route: 048
     Dates: start: 20000127, end: 20020502
  7. DIOVAN [Concomitant]
     Route: 065
     Dates: start: 19990825, end: 20020501
  8. ATENOLOL [Concomitant]
     Route: 065
     Dates: start: 19990825, end: 20020501
  9. PREMPRO [Concomitant]
     Indication: HORMONE REPLACEMENT THERAPY
     Route: 065
     Dates: start: 19990825, end: 20020401

REACTIONS (6)
  - CEREBROVASCULAR ACCIDENT [None]
  - CHRONIC OBSTRUCTIVE PULMONARY DISEASE [None]
  - DEATH [None]
  - HYPONATRAEMIA [None]
  - HYPOTENSION [None]
  - MYOCARDIAL INFARCTION [None]
